FAERS Safety Report 11776354 (Version 5)
Quarter: 2016Q1

REPORT INFORMATION
  Report Type: Spontaneous
  Country: US (occurrence: US)
  Receive Date: 20151125
  Receipt Date: 20160219
  Transmission Date: 20160525
  Serious: Yes (Hospitalization, Other)
  Sender: FDA-Public Use
  Company Number: US-HOSPIRA-3084553

PATIENT
  Age: 18 Year
  Sex: Male
  Weight: 108.8 kg

DRUGS (11)
  1. CYCLOPHOSPHAMIDE. [Suspect]
     Active Substance: CYCLOPHOSPHAMIDE
     Indication: ANAPLASTIC LARGE CELL LYMPHOMA T- AND NULL-CELL TYPES
     Dosage: PROPHASE, COURSE B
     Route: 042
     Dates: start: 20150903
  2. DEXAMETHASONE. [Suspect]
     Active Substance: DEXAMETHASONE
     Indication: ANAPLASTIC LARGE CELL LYMPHOMA T- AND NULL-CELL TYPES
     Dosage: PROPHASE, COURSE A AND B
     Route: 048
     Dates: start: 20150903
  3. CYTARABINE. [Suspect]
     Active Substance: CYTARABINE
     Indication: ANAPLASTIC LARGE CELL LYMPHOMA T- AND NULL-CELL TYPES
     Dosage: ON DAY 1, PROPHASE
     Route: 037
     Dates: start: 20150903
  4. CYTARABINE. [Suspect]
     Active Substance: CYTARABINE
     Indication: ANAPLASTIC LARGE CELL LYMPHOMA T- AND NULL-CELL TYPES
     Dosage: OVER 1-30 MINUTES EVERY 12 HOURS ON DAYS 4 AND 5, COURSE A
     Route: 042
     Dates: start: 20150911
  5. VP-16 [Suspect]
     Active Substance: ETOPOSIDE
     Indication: ANAPLASTIC LARGE CELL LYMPHOMA T- AND NULL-CELL TYPES
     Dosage: COURSE A: ON DAYS 4 AND 5
     Route: 042
     Dates: start: 20150911, end: 20150912
  6. IFOSFAMIDE. [Suspect]
     Active Substance: IFOSFAMIDE
     Indication: ANAPLASTIC LARGE CELL LYMPHOMA T- AND NULL-CELL TYPES
     Dosage: OVER 60 MIN ON DAY 1-5, COURSE A
     Route: 042
     Dates: start: 20150908
  7. METHOTREXATE [Suspect]
     Active Substance: METHOTREXATE
     Indication: ANAPLASTIC LARGE CELL LYMPHOMA T- AND NULL-CELL TYPES
     Dosage: ON DAY 1 PROPHASE
     Route: 037
     Dates: start: 20150903
  8. DOXORUBICIN HYDROCHLORIDE. [Suspect]
     Active Substance: DOXORUBICIN HYDROCHLORIDE
     Indication: ANAPLASTIC LARGE CELL LYMPHOMA T- AND NULL-CELL TYPES
     Dosage: ON DAYS 4 AND 5
     Route: 042
     Dates: start: 20151002
  9. CRIZOTINIB [Suspect]
     Active Substance: CRIZOTINIB
     Indication: ANAPLASTIC LARGE CELL LYMPHOMA T- AND NULL-CELL TYPES
     Dosage: 2X/DAY, ON DAY 1-21
     Route: 048
     Dates: start: 20150908, end: 20151013
  10. HYDROCORTISONE. [Suspect]
     Active Substance: HYDROCORTISONE
     Indication: ANAPLASTIC LARGE CELL LYMPHOMA T- AND NULL-CELL TYPES
     Dosage: 7.5 - 12 MG ON DAY 1, PROPHASE
     Route: 037
     Dates: start: 20150903, end: 20150903
  11. METHOTREXATE [Suspect]
     Active Substance: METHOTREXATE
     Indication: ANAPLASTIC LARGE CELL LYMPHOMA T- AND NULL-CELL TYPES
     Dosage: EVERY 3 HOURS ON DAY 1, COURSE A AND B
     Route: 042

REACTIONS (8)
  - Stomatitis [Recovered/Resolved]
  - Pleural effusion [Recovered/Resolved]
  - Febrile neutropenia [Recovered/Resolved]
  - Nausea [Recovered/Resolved]
  - Enterocolitis [Recovered/Resolved]
  - Vomiting [Recovered/Resolved]
  - Lung infection [Recovered/Resolved]
  - Hypokalaemia [Recovered/Resolved]

NARRATIVE: CASE EVENT DATE: 20151007
